FAERS Safety Report 9191092 (Version 2)
Quarter: 2013Q2

REPORT INFORMATION
  Report Type: Spontaneous
  Country: US (occurrence: US)
  Receive Date: 20130326
  Receipt Date: 20130529
  Transmission Date: 20140414
  Serious: Yes (Other)
  Sender: FDA-Public Use
  Company Number: US-BAYER-2013-035219

PATIENT
  Age: 42 Year
  Sex: Female

DRUGS (2)
  1. BAYER ADVANCED ASPIRIN EXTRA STRENGTH [Suspect]
     Indication: MIGRAINE
     Dosage: 2 DF, ONCE
     Route: 048
     Dates: start: 20130312, end: 20130312
  2. FIBROMYALGIA MEDICATION [Concomitant]

REACTIONS (4)
  - Gastric ulcer [None]
  - Abdominal pain upper [Not Recovered/Not Resolved]
  - Dyspepsia [Recovering/Resolving]
  - Drug ineffective [None]
